FAERS Safety Report 25595580 (Version 2)
Quarter: 2025Q4

REPORT INFORMATION
  Report Type: Spontaneous
  Country: US (occurrence: US)
  Receive Date: 20250723
  Receipt Date: 20251023
  Transmission Date: 20260118
  Serious: No
  Sender: TOLMAR
  Company Number: US-Tolmar-TLM-2025-04180

PATIENT

DRUGS (3)
  1. ELIGARD [Suspect]
     Active Substance: LEUPROLIDE ACETATE
     Indication: Prostate cancer
     Dosage: EXP: OCT-2026; SEP-2026; SEP-2026?SERIAL NUMBER: 985487143015?DOSE NOT ADMINISTERED TO PATIENT
  2. ELIGARD [Suspect]
     Active Substance: LEUPROLIDE ACETATE
     Dosage: REPLACEMENT DOSE GIVEN
  3. DEVICE [Suspect]
     Active Substance: DEVICE
     Indication: Prostate cancer
     Dosage: EXP: OCT-2026; SEP-2026; SEP-2026?SERIAL NUMBER: 985487143015

REACTIONS (3)
  - Wrong technique in product usage process [Unknown]
  - Device leakage [Unknown]
  - Product preparation error [Unknown]
